FAERS Safety Report 24368494 (Version 1)
Quarter: 2024Q3

REPORT INFORMATION
  Report Type: Spontaneous
  Country: DE (occurrence: DE)
  Receive Date: 20240926
  Receipt Date: 20240926
  Transmission Date: 20241017
  Serious: Yes (Other)
  Sender: NOVARTIS
  Company Number: DE-002147023-NVSC2024DE179680

PATIENT
  Sex: Female

DRUGS (1)
  1. KESIMPTA [Suspect]
     Active Substance: OFATUMUMAB
     Indication: Product used for unknown indication
     Dosage: 20 MG, QMO
     Route: 065
     Dates: start: 20240826

REACTIONS (9)
  - Nephritis [Recovering/Resolving]
  - Renal pain [Recovering/Resolving]
  - Malaise [Unknown]
  - Influenza like illness [Unknown]
  - Arthralgia [Recovering/Resolving]
  - Infection [Unknown]
  - Dysphonia [Unknown]
  - Oropharyngeal pain [Unknown]
  - Injection site pain [Recovering/Resolving]

NARRATIVE: CASE EVENT DATE: 20240901
